FAERS Safety Report 23098278 (Version 1)
Quarter: 2023Q4

REPORT INFORMATION
  Report Type: Report from Study
  Country: US (occurrence: US)
  Receive Date: 20231023
  Receipt Date: 20231023
  Transmission Date: 20240109
  Serious: Yes (Hospitalization)
  Sender: FDA-Public Use
  Company Number: US-ABBVIE-5457816

PATIENT
  Sex: Male

DRUGS (1)
  1. LUPRON DEPOT [Suspect]
     Active Substance: LEUPROLIDE ACETATE
     Indication: Product used for unknown indication
     Route: 030
     Dates: start: 20220426

REACTIONS (6)
  - Post-acute COVID-19 syndrome [Unknown]
  - Dyspnoea [Unknown]
  - Hot flush [Unknown]
  - Breast enlargement [Unknown]
  - Respiratory tract congestion [Unknown]
  - Fatigue [Unknown]
